FAERS Safety Report 25386918 (Version 2)
Quarter: 2025Q3

REPORT INFORMATION
  Report Type: Spontaneous
  Country: US (occurrence: US)
  Receive Date: 20250602
  Receipt Date: 20250912
  Transmission Date: 20251021
  Serious: No
  Sender: PFIZER
  Company Number: US-PFIZER INC-202500111576

PATIENT
  Age: 12 Year
  Sex: Female

DRUGS (2)
  1. LITFULO [Suspect]
     Active Substance: RITLECITINIB TOSYLATE
     Indication: Alopecia areata
     Dosage: 1 DF, DAILY
  2. LITFULO [Suspect]
     Active Substance: RITLECITINIB TOSYLATE

REACTIONS (2)
  - Therapeutic product effect incomplete [Unknown]
  - Blood test abnormal [Unknown]
